FAERS Safety Report 8818274 (Version 3)
Quarter: 2012Q4

REPORT INFORMATION
  Report Type: 
  Country: DE (occurrence: DE)
  Receive Date: 20121001
  Receipt Date: 20121219
  Transmission Date: 20130627
  Serious: Yes (Hospitalization, Other)
  Sender: FDA-Public Use
  Company Number: DE-UCBSA-067864

PATIENT
  Age: 25 Year
  Sex: Male

DRUGS (7)
  1. LACOSAMIDE [Suspect]
     Indication: EPILEPSY
     Dosage: DAILY DOSE: 100 MG
     Route: 048
     Dates: end: 2011
  2. LEVETIRACETAM [Suspect]
     Indication: EPILEPSY
     Dosage: DAILY DOSE: 3000 MG
     Route: 048
  3. LEVETIRACETAM [Suspect]
     Indication: EPILEPSY
     Dosage: DAILY DOSE: 4000 MG
  4. LAMOTRIGINE [Suspect]
     Indication: EPILEPSY
     Dosage: DAILY DOSE: 300 MG
     Route: 048
  5. LAMOTRIGINE [Suspect]
     Indication: EPILEPSY
     Dosage: DAILY DOSE: 400 MG
     Route: 048
  6. VALPROATE [Concomitant]
     Dosage: DAILY DOSE: 1000 MG
  7. DELIX [Concomitant]
     Indication: HYPERTENSION
     Dosage: TOTAL DAILY DOSE: 10MG
     Route: 048

REACTIONS (2)
  - Atrial fibrillation [Recovered/Resolved]
  - Grand mal convulsion [Recovered/Resolved]
